FAERS Safety Report 23121637 (Version 2)
Quarter: 2023Q4

REPORT INFORMATION
  Report Type: Report from Study
  Country: AR (occurrence: AR)
  Receive Date: 20231029
  Receipt Date: 20231122
  Transmission Date: 20240109
  Serious: Yes (Other)
  Sender: FDA-Public Use
  Company Number: AR-002147023-NVSC2023AR185047

PATIENT
  Sex: Female

DRUGS (1)
  1. KISQALI [Suspect]
     Active Substance: RIBOCICLIB
     Indication: Breast cancer metastatic
     Dosage: 600 MG, QD (ONCE DAILY)
     Route: 048
     Dates: start: 20230626

REACTIONS (9)
  - Blindness [Unknown]
  - Metastases to bone [Unknown]
  - Malaise [Unknown]
  - Reading disorder [Unknown]
  - Pain in extremity [Unknown]
  - Gait disturbance [Unknown]
  - Agitation [Unknown]
  - Arthralgia [Unknown]
  - Fatigue [Unknown]

NARRATIVE: CASE EVENT DATE: 20230101
